FAERS Safety Report 15640339 (Version 2)
Quarter: 2018Q4

REPORT INFORMATION
  Report Type: Spontaneous
  Country: CZ (occurrence: CZ)
  Receive Date: 20181120
  Receipt Date: 20181130
  Transmission Date: 20190205
  Serious: Yes (Other)
  Sender: FDA-Public Use
  Company Number: PHHY2018CZ153262

PATIENT
  Age: 63 Year
  Sex: Male

DRUGS (2)
  1. SANDOSTATIN [Suspect]
     Active Substance: OCTREOTIDE ACETATE
     Indication: CARCINOID SYNDROME
     Dosage: 100 UG, TID
     Route: 058
  2. SANDOSTATIN LAR DEPOT [Suspect]
     Active Substance: OCTREOTIDE ACETATE
     Indication: CARCINOID SYNDROME
     Dosage: 30 MG, UNK
     Route: 065

REACTIONS (16)
  - Burning sensation [Unknown]
  - Drug dependence [Unknown]
  - Drug ineffective [Recovering/Resolving]
  - Nicotinic acid deficiency [Unknown]
  - Flushing [Unknown]
  - Back pain [Unknown]
  - Blood chromogranin A increased [Unknown]
  - Nervousness [Unknown]
  - Bronchial irritation [Unknown]
  - Asthenia [Unknown]
  - Cardiac failure [Unknown]
  - Ascites [Unknown]
  - Metastases to liver [Unknown]
  - Diarrhoea [Unknown]
  - Pruritus [Unknown]
  - Dyspnoea [Unknown]

NARRATIVE: CASE EVENT DATE: 2015
